FAERS Safety Report 26133483 (Version 1)
Quarter: 2025Q4

REPORT INFORMATION
  Report Type: Spontaneous
  Country: US (occurrence: US)
  Receive Date: 20251209
  Receipt Date: 20251209
  Transmission Date: 20260117
  Serious: Yes (Hospitalization, Other)
  Sender: Onesource Specialty Pharma
  Company Number: US-STRIDES ARCOLAB LIMITED-2025OS000784

PATIENT
  Age: 42 Year
  Sex: Female

DRUGS (4)
  1. MIDAZOLAM [Suspect]
     Active Substance: MIDAZOLAM
     Indication: Seizure
     Dosage: DRIP
     Route: 065
  2. LEVETIRACETAM [Suspect]
     Active Substance: LEVETIRACETAM
     Indication: Seizure
     Dosage: UNK
     Route: 065
  3. VALPROIC ACID [Suspect]
     Active Substance: VALPROIC ACID
     Indication: Seizure
     Dosage: UNK
     Route: 065
  4. LACOSAMIDE [Suspect]
     Active Substance: LACOSAMIDE
     Indication: Seizure
     Dosage: UNK
     Route: 065

REACTIONS (1)
  - Drug ineffective for unapproved indication [Unknown]
